FAERS Safety Report 9398788 (Version 1)
Quarter: 2013Q3

REPORT INFORMATION
  Report Type: Spontaneous
  Country: US (occurrence: US)
  Receive Date: 20130712
  Receipt Date: 20130712
  Transmission Date: 20140515
  Serious: Yes (Hospitalization, Other)
  Sender: FDA-Public Use
  Company Number: US-009507513-1109USA03019

PATIENT
  Sex: Female
  Weight: 77.11 kg

DRUGS (9)
  1. FOSAMAX [Suspect]
     Indication: OSTEOPOROSIS
     Dosage: 70 MG QW
     Route: 048
     Dates: start: 20010914, end: 200110
  2. FOSAMAX [Suspect]
     Indication: OSTEOPENIA
     Dosage: 70 MG QW
     Route: 048
     Dates: start: 20040115, end: 20060502
  3. FOSAMAX [Suspect]
     Dosage: 70 MG QW
     Route: 048
     Dates: start: 20070313, end: 200810
  4. BONIVA [Suspect]
     Dosage: 150  MG, UNK
     Route: 048
     Dates: start: 20060605, end: 20070310
  5. FOSAMAX [Suspect]
     Dosage: 70 MG
     Route: 048
     Dates: start: 20081211, end: 200909
  6. PRINIVIL [Concomitant]
     Dosage: 20 MG, QD
     Route: 048
  7. MK-0152 [Concomitant]
     Dosage: 25 MG, QD
     Route: 048
  8. PROVENTIL [Concomitant]
     Route: 055
  9. ADVAIR [Concomitant]
     Route: 055

REACTIONS (21)
  - Femur fracture [Unknown]
  - Intramedullary rod insertion [Unknown]
  - Femur fracture [Unknown]
  - Intramedullary rod insertion [Unknown]
  - Renal failure chronic [Unknown]
  - Postoperative renal failure [Unknown]
  - Femur fracture [Unknown]
  - Low turnover osteopathy [Unknown]
  - Contusion [Unknown]
  - Fall [Unknown]
  - Chronic obstructive pulmonary disease [Unknown]
  - Asthma [Unknown]
  - Sinusitis [Unknown]
  - Metabolic acidosis [Unknown]
  - Onychomycosis [Unknown]
  - Blood thyroid stimulating hormone decreased [Unknown]
  - Treatment noncompliance [Unknown]
  - Vitamin D deficiency [Unknown]
  - Anaemia [Unknown]
  - Tooth disorder [Unknown]
  - Oedema peripheral [Unknown]
